FAERS Safety Report 17732686 (Version 4)
Quarter: 2020Q2

REPORT INFORMATION
  Report Type: Spontaneous
  Country: FR (occurrence: FR)
  Receive Date: 20200501
  Receipt Date: 20200521
  Transmission Date: 20200714
  Serious: Yes (Other)
  Sender: FDA-Public Use
  Company Number: FR-GLAXOSMITHKLINE-FR2020EME071266

PATIENT
  Age: 6 Year
  Sex: Male
  Weight: 23 kg

DRUGS (1)
  1. SERETIDE [Suspect]
     Active Substance: FLUTICASONE PROPIONATE\SALMETEROL XINAFOATE
     Indication: ASTHMA
     Dosage: 2 PUFF(S), BID
     Route: 048

REACTIONS (6)
  - Asthmatic crisis [Unknown]
  - Incorrect dose administered [Unknown]
  - Asthma [Recovered/Resolved]
  - Drug ineffective [Unknown]
  - Dyspnoea [Recovered/Resolved]
  - Product complaint [Unknown]
